FAERS Safety Report 18394545 (Version 1)
Quarter: 2020Q4

REPORT INFORMATION
  Report Type: Spontaneous
  Country: NL (occurrence: NL)
  Receive Date: 20201016
  Receipt Date: 20201016
  Transmission Date: 20210114
  Serious: Yes (Other)
  Sender: FDA-Public Use
  Company Number: NL-UCBSA-2020040139

PATIENT
  Sex: Female

DRUGS (23)
  1. CAPECITABINE. [Suspect]
     Active Substance: CAPECITABINE
     Indication: DISEASE PROGRESSION
     Dosage: UNK
     Dates: start: 201201
  2. ZOMETA [Suspect]
     Active Substance: ZOLEDRONIC ACID
     Indication: METASTASES TO LIVER
     Dosage: UNK UNK, EV 4 WEEKS
     Dates: start: 201111
  3. MEGESTROL [Concomitant]
     Active Substance: MEGESTROL
     Indication: PRODUCT USED FOR UNKNOWN INDICATION
     Dosage: 160 MG, QD
     Route: 048
  4. PACLIMEIZ [Suspect]
     Active Substance: PACLITAXEL
     Dosage: UNK UNK, WEEKLY (QW)
     Dates: start: 201505
  5. MEGACE [Concomitant]
     Active Substance: MEGESTROL ACETATE
     Indication: PRODUCT USED FOR UNKNOWN INDICATION
     Dosage: UNK
  6. LEVETIRACETAM. [Suspect]
     Active Substance: LEVETIRACETAM
     Indication: PRODUCT USED FOR UNKNOWN INDICATION
     Dosage: 500 MG, BID
     Route: 048
  7. FEMARA [Suspect]
     Active Substance: LETROZOLE
     Indication: METASTASES TO LIVER
  8. EVEROLIMUS. [Suspect]
     Active Substance: EVEROLIMUS
     Indication: PRODUCT USED FOR UNKNOWN INDICATION
     Dosage: 5 MG, QD
     Dates: start: 20130515, end: 201311
  9. EVEROLIMUS. [Suspect]
     Active Substance: EVEROLIMUS
     Dosage: 10 MG
     Dates: start: 201311
  10. PACLIMEIZ [Suspect]
     Active Substance: PACLITAXEL
     Indication: DISEASE PROGRESSION
     Dosage: UNK UNK, WEEKLY (QW)
     Dates: start: 201301
  11. KEPPRA [Concomitant]
     Active Substance: LEVETIRACETAM
     Indication: EPILEPSY
     Dosage: UNK
     Dates: start: 201408
  12. FULVESTRANT. [Suspect]
     Active Substance: FULVESTRANT
     Indication: DISEASE PROGRESSION
     Dosage: UNK
     Dates: start: 20191023, end: 202004
  13. OXYCODONE [Suspect]
     Active Substance: OXYCODONE
     Indication: PRODUCT USED FOR UNKNOWN INDICATION
     Dosage: 10 MG, BID
     Route: 048
  14. TAMOXIFEN [Suspect]
     Active Substance: TAMOXIFEN
     Indication: BREAST CANCER
     Dosage: UNK
     Dates: start: 200110
  15. ZOMETA [Suspect]
     Active Substance: ZOLEDRONIC ACID
     Indication: METASTASES TO BONE
  16. DEXTRAN 70 [Concomitant]
     Active Substance: DEXTRAN 70
     Indication: PRODUCT USED FOR UNKNOWN INDICATION
     Dosage: 15 ML (VIAL), DRIP VV 2DD IN BOTH EYES WHEN NECESSARY
  17. LEVETIRACETAM. [Suspect]
     Active Substance: LEVETIRACETAM
     Dosage: UNK
     Route: 048
  18. FEMARA [Suspect]
     Active Substance: LETROZOLE
     Indication: METASTASES TO BONE
     Dosage: 2.5 MG, QD
     Dates: start: 201111
  19. EXEMESTANE. [Suspect]
     Active Substance: EXEMESTANE
     Indication: PRODUCT USED FOR UNKNOWN INDICATION
     Dosage: 25 MILLIGRAM, ONCE DAILY (QD)
     Dates: start: 20130515
  20. ERIBULIN [Suspect]
     Active Substance: ERIBULIN
     Indication: DISEASE PROGRESSION
     Dosage: UNK
     Dates: start: 201705, end: 201807
  21. PACLIMEIZ [Suspect]
     Active Substance: PACLITAXEL
     Dosage: UNK UNK, WEEKLY (QW)
     Dates: start: 201401, end: 201412
  22. TEGRETOL [Suspect]
     Active Substance: CARBAMAZEPINE
     Indication: EPILEPSY
     Dosage: UNK
     Dates: start: 1987, end: 201408
  23. CYCLOPHOSPHAMIDE. [Suspect]
     Active Substance: CYCLOPHOSPHAMIDE
     Indication: BREAST CANCER
     Dosage: UNK
     Dates: start: 200110

REACTIONS (15)
  - Neutropenia [Unknown]
  - Central nervous system lesion [Unknown]
  - Radiculopathy [Unknown]
  - Metastases to liver [Unknown]
  - Pneumonia [Unknown]
  - Endometriosis [Unknown]
  - Papillary thyroid cancer [Unknown]
  - Palmar-plantar erythrodysaesthesia syndrome [Unknown]
  - Epilepsy [Unknown]
  - Metastases to bone [Unknown]
  - Metastases to central nervous system [Unknown]
  - Disease progression [Unknown]
  - Hepatitis [Unknown]
  - Breast cancer [Unknown]
  - Thoracic vertebral fracture [Unknown]

NARRATIVE: CASE EVENT DATE: 1995
